FAERS Safety Report 5355771-7 (Version None)
Quarter: 2007Q2

REPORT INFORMATION
  Report Type: 
  Country: None (occurrence: None)
  Receive Date: 20070530
  Receipt Date: 20061009
  Transmission Date: 20071010
  Serious: Yes (Hospitalization)
  Sender: FDA-Public Use
  Company Number: US200610001798

PATIENT
  Sex: Female
  Weight: 104.8 kg

DRUGS (1)
  1. ZYPREXA [Suspect]
     Dosage: SEE IMAGE
     Dates: start: 20000101, end: 20030101

REACTIONS (7)
  - BIPOLAR I DISORDER [None]
  - CHOLELITHIASIS [None]
  - DIABETES MELLITUS [None]
  - METABOLIC DISORDER [None]
  - OBESITY [None]
  - PRESCRIBED OVERDOSE [None]
  - SUICIDE ATTEMPT [None]
